FAERS Safety Report 17091743 (Version 6)
Quarter: 2020Q2

REPORT INFORMATION
  Report Type: Spontaneous
  Country: SK (occurrence: SK)
  Receive Date: 20191129
  Receipt Date: 20200501
  Transmission Date: 20200713
  Serious: Yes (Death, Life-Threatening, Hospitalization, Other)
  Sender: FDA-Public Use
  Company Number: SK-ROCHE-2486332

PATIENT
  Age: 67 Year
  Sex: Male

DRUGS (12)
  1. BINOCRIT [Concomitant]
     Active Substance: ERYTHROPOIETIN
     Indication: ANAEMIA
     Dosage: 30 MIU.SC 1X PER WEEK
     Route: 065
     Dates: start: 20191119, end: 20191230
  2. TECENTRIQ [Suspect]
     Active Substance: ATEZOLIZUMAB
     Indication: METASTASES TO BONE
  3. PALLADONE [Concomitant]
     Active Substance: HYDROMORPHONE HYDROCHLORIDE
     Dosage: 4 MG CPS PLD 60X4 MG (BLIS.PVC / PVDC / AL) S: EVERY 12 HRS. 1 TBL)
     Route: 065
     Dates: start: 20191207, end: 20200107
  4. NIMESULIDE [Concomitant]
     Active Substance: NIMESULIDE
     Indication: PAIN
     Dosage: (30 PCS) LIQUID GRU POR 30X100 MG (TISSUE PAPER / AL / PE) (AULIN 100 MG?GRANULATE
     Route: 065
     Dates: start: 20191217, end: 20200110
  5. PHYTOMENADIONE [Concomitant]
     Active Substance: PHYTONADIONE
     Dosage: 20 MG / ML GTE PER 1X5 ML
     Route: 048
     Dates: start: 20191207, end: 20200107
  6. MIDAZOLAM. [Concomitant]
     Active Substance: MIDAZOLAM
     Dosage: 5 MG / 24 CONTINUOUS  PUMP
     Route: 058
     Dates: start: 20200110, end: 20200112
  7. DUPHALAC [Concomitant]
     Active Substance: LACTULOSE
     Dosage: 50% (500 ML) SYRUP 1X500 ML (HDPE BOTTLE) (DUPHALAC) S: 2X5ML
     Route: 065
     Dates: start: 20191029, end: 20200110
  8. TECENTRIQ [Suspect]
     Active Substance: ATEZOLIZUMAB
     Indication: METASTASES TO LIVER
     Route: 042
     Dates: start: 20191212
  9. MORPHINE [Concomitant]
     Active Substance: MORPHINE
     Dosage: 10MG AMP. / 24 HOURS CONTINUOUSLY WITH SC PUMP
     Route: 065
     Dates: start: 20200110, end: 20200112
  10. HALOPERIDOL. [Concomitant]
     Active Substance: HALOPERIDOL
     Dosage: AMP. 5 MG / 24 HR. CONTINUOUSLY SC PUMP
     Route: 065
     Dates: start: 20200110, end: 20200112
  11. TECENTRIQ [Suspect]
     Active Substance: ATEZOLIZUMAB
     Indication: BLADDER CANCER
     Route: 042
     Dates: start: 20191112, end: 20200107
  12. METAMIZOLE [Concomitant]
     Active Substance: METAMIZOLE
     Indication: PAIN
     Dosage: TBL 50X500 MG (BLIS.PVC / AL) (METAMISTAD TABLETS) S: 3X1 FOR PAIN
     Route: 065
     Dates: start: 20191217, end: 20200110

REACTIONS (7)
  - Nausea [Recovering/Resolving]
  - Acute myocardial infarction [Recovered/Resolved]
  - Anaemia [Not Recovered/Not Resolved]
  - Malaise [Not Recovered/Not Resolved]
  - Thrombocytopenia [Not Recovered/Not Resolved]
  - Cardiopulmonary failure [Fatal]
  - Asthenia [Not Recovered/Not Resolved]

NARRATIVE: CASE EVENT DATE: 20191119
